FAERS Safety Report 24463060 (Version 1)
Quarter: 2024Q4

REPORT INFORMATION
  Report Type: Spontaneous
  Country: AU (occurrence: AU)
  Receive Date: 20241018
  Receipt Date: 20241018
  Transmission Date: 20250114
  Serious: Yes (Other)
  Sender: BIOVITRUM
  Company Number: AU-BIOVITRUM-2024-AU-011685

PATIENT
  Age: 76 Year
  Sex: Female

DRUGS (1)
  1. AVATROMBOPAG [Suspect]
     Active Substance: AVATROMBOPAG
     Indication: Product used for unknown indication
     Dosage: DAILY
     Route: 065

REACTIONS (2)
  - Platelet count decreased [Recovered/Resolved]
  - Chronic lymphocytic leukaemia [Unknown]
